FAERS Safety Report 6105983-X (Version None)
Quarter: 2009Q1

REPORT INFORMATION
  Report Type: 
  Country: None (occurrence: None)
  Receive Date: 20090306
  Receipt Date: 20081008
  Transmission Date: 20090719
  Serious: Yes (Hospitalization)
  Sender: FDA-Public Use
  Company Number: US-BRISTOL-MYERS SQUIBB COMPANY-14344121

PATIENT
  Age: 52 Year
  Sex: Male

DRUGS (3)
  1. ERBITUX [Suspect]
     Indication: CHEMOTHERAPY
     Dosage: 495 MG IN 247.5 ML NORMAL SALINE, 2ND BAG(279 MG IN 148.5 NS) WAS NOT GIVEN.STOPPED AT 1618 HOURS
     Route: 042
     Dates: start: 20080917, end: 20080917
  2. TAXOL [Suspect]
     Indication: CHEMOTHERAPY
     Dosage: 89MG IN NS 250ML OVER 1 HOUR
     Route: 042
     Dates: start: 20080917, end: 20080917
  3. CARBOPLATIN [Suspect]
     Indication: CHEMOTHERAPY
     Dosage: 246MG IN NS 250ML OVER 30 MIN VIA PUMP
     Route: 042
     Dates: start: 20080917, end: 20080917

REACTIONS (1)
  - INFUSION RELATED REACTION [None]
